FAERS Safety Report 4643961-8 (Version None)
Quarter: 2005Q2

REPORT INFORMATION
  Report Type: 
  Country: None (occurrence: None)
  Receive Date: 20050425
  Receipt Date: 20050406
  Transmission Date: 20051028
  Serious: Yes (Hospitalization)
  Sender: FDA-Public Use
  Company Number: PHBS2005JP04886

PATIENT
  Age: 50 Year
  Sex: Female

DRUGS (2)
  1. ADRENOCORTICOTROPHIC HORMONE [Suspect]
     Indication: SYSTEMIC LUPUS ERYTHEMATOSUS
     Route: 065
  2. CYCLOSPORINE [Suspect]
     Indication: SYSTEMIC LUPUS ERYTHEMATOSUS
     Route: 065

REACTIONS (8)
  - BLOOD BETA-D-GLUCAN INCREASED [None]
  - FUNGUS SEROLOGY TEST POSITIVE [None]
  - INFLAMMATION [None]
  - LUNG INFILTRATION [None]
  - PNEUMOMEDIASTINUM [None]
  - PNEUMONITIS CRYPTOCOCCAL [None]
  - PYREXIA [None]
  - RESPIRATORY DISORDER [None]
